FAERS Safety Report 7882652-7 (Version None)
Quarter: 2011Q4

REPORT INFORMATION
  Report Type: 
  Country: None (occurrence: None)
  Receive Date: 20111101
  Receipt Date: 20110617
  Transmission Date: 20120403
  Serious: No
  Sender: FDA-Public Use
  Company Number: US-AMGEN-USASP2011000832

PATIENT
  Age: 78 Year
  Sex: Female

DRUGS (2)
  1. ENBREL [Suspect]
     Indication: RHEUMATOID ARTHRITIS
     Dosage: 25 MG, 2 TIMES/WK
     Dates: start: 20001001, end: 20110501
  2. ENBREL [Suspect]
     Dates: start: 20001002, end: 20110501

REACTIONS (11)
  - ENDODONTIC PROCEDURE [None]
  - TOOTH EXTRACTION [None]
  - NASOPHARYNGITIS [None]
  - SINUSITIS [None]
  - INJECTION SITE PAIN [None]
  - RHEUMATOID ARTHRITIS [None]
  - SKIN LESION [None]
  - LOCALISED INFECTION [None]
  - IMPAIRED HEALING [None]
  - FOOT DEFORMITY [None]
  - COUGH [None]
